FAERS Safety Report 23334860 (Version 2)
Quarter: 2024Q1

REPORT INFORMATION
  Report Type: Report from Study
  Country: GB (occurrence: GB)
  Receive Date: 20231224
  Receipt Date: 20240108
  Transmission Date: 20240410
  Serious: Yes (Other)
  Sender: FDA-Public Use
  Company Number: GB-BAXTER-2023BAX038719

PATIENT
  Sex: Male

DRUGS (12)
  1. SYNTHAMIN [Suspect]
     Active Substance: AMINO ACIDS
     Indication: Parenteral nutrition
     Dosage: 16 HOURS DAILY AT AN UNSPECIFIED DOSE
     Route: 065
  2. WATER FOR INJECTION [Suspect]
     Active Substance: WATER
     Indication: Parenteral nutrition
     Dosage: 16 HOURS DAILY AT AN UNSPECIFIED DOSE
     Route: 065
  3. CERNEVIT [Suspect]
     Active Substance: VITAMINS
     Indication: Parenteral nutrition
     Dosage: 16 HOURS DAILY AT AN UNSPECIFIED DOSE
     Route: 065
  4. DEXTROSE [Suspect]
     Active Substance: DEXTROSE\DEXTROSE MONOHYDRATE
     Indication: Parenteral nutrition
     Dosage: 16 HOURS DAILY AT AN UNSPECIFIED DOSE
     Route: 065
  5. IRON\MINERALS\POTASSIUM IOD\SODIUM FLUORIDE\SODIUM MOLYBDATE\SODIUM SE [Suspect]
     Active Substance: IRON\MINERALS\POTASSIUM IOD\SODIUM FLUORIDE\SODIUM MOLYBDATE\SODIUM SELENITE\ZINC
     Indication: Parenteral nutrition
     Dosage: 16 HOURS DAILY AT AN UNSPECIFIED DOSE
     Route: 065
  6. CALCIUM CHLORIDE [Suspect]
     Active Substance: CALCIUM CHLORIDE
     Indication: Parenteral nutrition
     Dosage: 16 HOURS DAILY AT AN UNSPECIFIED DOSE
     Route: 065
  7. MAGNESIUM SULFATE [Suspect]
     Active Substance: MAGNESIUM SULFATE\MAGNESIUM SULFATE HEPTAHYDRATE
     Indication: Parenteral nutrition
     Dosage: 16 HOURS DAILY AT AN UNSPECIFIED DOSE
     Route: 065
  8. POTASSIUM CHLORIDE [Suspect]
     Active Substance: POTASSIUM CHLORIDE
     Indication: Parenteral nutrition
     Dosage: 16 HOURS DAILY AT AN UNSPECIFIED DOSE
     Route: 065
  9. SODIUM CHLORIDE [Suspect]
     Active Substance: SODIUM CHLORIDE
     Indication: Parenteral nutrition
     Dosage: 16 HOURS DAILY AT AN UNSPECIFIED DOSE
     Route: 065
  10. SODIUM GLYCEROPHOSPHATE [Suspect]
     Active Substance: SODIUM GLYCEROPHOSPHATE
     Indication: Parenteral nutrition
     Dosage: 16 HOURS DAILY AT AN UNSPECIFIED DOSE
     Route: 065
  11. WATER [Suspect]
     Active Substance: WATER
     Indication: Parenteral nutrition
     Dosage: 16 HOURS DAILY AT AN UNSPECIFIED DOSE, WATER FOR TPN FORMULATIONS
     Route: 065
  12. UNSPECIFIED INGREDIENT [Suspect]
     Active Substance: UNSPECIFIED INGREDIENT
     Route: 065

REACTIONS (5)
  - Hallucination, visual [Unknown]
  - Malaise [Unknown]
  - Paraesthesia [Unknown]
  - Grip strength decreased [Unknown]
  - Body temperature abnormal [Unknown]
